FAERS Safety Report 15018517 (Version 3)
Quarter: 2021Q2

REPORT INFORMATION
  Report Type: Report from Study
  Country: None (occurrence: JP)
  Receive Date: 20180615
  Receipt Date: 20210604
  Transmission Date: 20210716
  Serious: Yes (Other)
  Sender: FDA-Public Use
  Company Number: JP-BAUSCH-BL-2018-016825

PATIENT
  Age: 46 Year
  Sex: Female
  Weight: 42.15 kg

DRUGS (19)
  1. EDIROL [Concomitant]
     Active Substance: ELDECALCITOL
     Indication: PRODUCT USED FOR UNKNOWN INDICATION
  2. MAGMITT [Concomitant]
     Active Substance: MAGNESIUM OXIDE
     Indication: PRODUCT USED FOR UNKNOWN INDICATION
     Dosage: UNSPECIFIED FORM
     Route: 048
  3. METHOTREXATE. [Suspect]
     Active Substance: METHOTREXATE
     Dosage: UNSPECIFIED FORM
     Route: 048
  4. TIGASON (ETRETINATE) [Concomitant]
     Dates: start: 20160523, end: 20180604
  5. PARIET [Concomitant]
     Active Substance: RABEPRAZOLE SODIUM
     Indication: PRODUCT USED FOR UNKNOWN INDICATION
  6. BONALON [Concomitant]
     Active Substance: ALENDRONATE SODIUM
     Indication: PRODUCT USED FOR UNKNOWN INDICATION
  7. METHOTREXATE. [Suspect]
     Active Substance: METHOTREXATE
     Dosage: UNSPECIFIED FORM
     Route: 048
  8. PREDONINE [Concomitant]
     Active Substance: PREDNISOLONE
     Indication: PRODUCT USED FOR UNKNOWN INDICATION
     Dates: end: 20180425
  9. DESALEX [Concomitant]
     Active Substance: DESLORATADINE
     Indication: PRODUCT USED FOR UNKNOWN INDICATION
  10. PROGRAF [Concomitant]
     Active Substance: TACROLIMUS
     Indication: PRODUCT USED FOR UNKNOWN INDICATION
     Dosage: UNSPECIFIED FORM
     Route: 048
     Dates: start: 2006
  11. MIYA?BM [Concomitant]
     Active Substance: CLOSTRIDIUM BUTYRICUM SPORES STRAIN M-55
     Indication: PRODUCT USED FOR UNKNOWN INDICATION
  12. LUMICEF [Suspect]
     Active Substance: BRODALUMAB
     Indication: PUSTULAR PSORIASIS
     Route: 058
     Dates: start: 20180517, end: 20180531
  13. FOLIAMIN (FOLIC ACID) [Concomitant]
     Active Substance: FOLIC ACID
     Indication: PRODUCT USED FOR UNKNOWN INDICATION
     Dosage: UNSPECIFIED FORM
     Route: 048
  14. METHOTREXATE. [Suspect]
     Active Substance: METHOTREXATE
     Indication: PRODUCT USED FOR UNKNOWN INDICATION
     Dosage: UNSPECIFIED FORM
     Route: 048
     Dates: start: 1992
  15. METHOTREXATE. [Suspect]
     Active Substance: METHOTREXATE
     Dosage: UNSPECIFIED FORM
     Route: 048
     Dates: end: 2004
  16. TIGASON (ETRETINATE) [Concomitant]
     Indication: PRODUCT USED FOR UNKNOWN INDICATION
     Dates: end: 20160516
  17. ROHYPNOL [Concomitant]
     Active Substance: FLUNITRAZEPAM
     Indication: PRODUCT USED FOR UNKNOWN INDICATION
  18. CARERAM [Concomitant]
     Active Substance: IGURATIMOD
     Indication: PRODUCT USED FOR UNKNOWN INDICATION
     Dates: start: 20180301
  19. CYMBALTA [Concomitant]
     Active Substance: DULOXETINE HYDROCHLORIDE
     Indication: PRODUCT USED FOR UNKNOWN INDICATION

REACTIONS (7)
  - Pancytopenia [Unknown]
  - Oral mucosa erosion [Unknown]
  - Pyrexia [Unknown]
  - Dermatitis bullous [Unknown]
  - Palmoplantar pustulosis [Unknown]
  - Lip erosion [Unknown]
  - Alopecia [Unknown]

NARRATIVE: CASE EVENT DATE: 20180531
